FAERS Safety Report 8550283-1 (Version None)
Quarter: 2012Q3

REPORT INFORMATION
  Report Type: 
  Country: None (occurrence: None)
  Receive Date: 20120730
  Receipt Date: 20120723
  Transmission Date: 20120928
  Serious: Yes (Other)
  Sender: FDA-Public Use
  Company Number: PHHY2012CA009731

PATIENT
  Sex: Male

DRUGS (2)
  1. GILENYA [Suspect]
     Indication: RELAPSING-REMITTING MULTIPLE SCLEROSIS
     Dosage: 0.5 MG, QD
     Route: 048
     Dates: start: 20110922
  2. GILENYA [Suspect]
     Dosage: 0.5 MG, QOD
     Route: 048

REACTIONS (5)
  - NARROW ANTERIOR CHAMBER ANGLE [None]
  - INAPPROPRIATE SCHEDULE OF DRUG ADMINISTRATION [None]
  - FATIGUE [None]
  - STRESS [None]
  - WHITE BLOOD CELL COUNT DECREASED [None]
